FAERS Safety Report 7067985-9 (Version None)
Quarter: 2010Q4

REPORT INFORMATION
  Report Type: 
  Country: None (occurrence: None)
  Receive Date: 20101027
  Receipt Date: 20101027
  Transmission Date: 20110411
  Serious: Yes (Life-Threatening)
  Sender: FDA-Public Use
  Company Number: None

PATIENT
  Sex: Female
  Weight: 56.6996 kg

DRUGS (1)
  1. GEODON [Suspect]
     Dosage: 20 MG - 40 MG 1 TIME NIGHTLY
     Dates: start: 20050627, end: 20060331

REACTIONS (4)
  - DEPRESSION [None]
  - FEELING ABNORMAL [None]
  - SEDATION [None]
  - SUICIDAL IDEATION [None]
